FAERS Safety Report 21031875 (Version 2)
Quarter: 2023Q2

REPORT INFORMATION
  Report Type: Other
  Country: US (occurrence: None)
  Receive Date: 20220701
  Receipt Date: 20230517
  Transmission Date: 20230721
  Serious: No
  Sender: FDA-Public Use
  Company Number: US-ROCHE-3062651

PATIENT
  Age: 39 Year
  Sex: Female

DRUGS (7)
  1. TOCILIZUMAB [Suspect]
     Active Substance: TOCILIZUMAB
     Indication: COVID-19
     Dosage: ONCE
     Route: 042
  2. TOCILIZUMAB [Suspect]
     Active Substance: TOCILIZUMAB
     Indication: Cardiomyopathy
  3. DEXAMETHASONE [Concomitant]
     Active Substance: DEXAMETHASONE
     Indication: COVID-19
  4. FUROSEMIDE [Concomitant]
     Active Substance: FUROSEMIDE
     Indication: COVID-19
  5. LOSARTAN [Concomitant]
     Active Substance: LOSARTAN
     Indication: Left ventricular failure
  6. CARVEDILOL [Concomitant]
     Active Substance: CARVEDILOL
     Indication: Left ventricular failure
  7. SPIRONOLACTONE [Concomitant]
     Active Substance: SPIRONOLACTONE
     Indication: Left ventricular failure

REACTIONS (2)
  - Off label use [Unknown]
  - No adverse event [Unknown]
